FAERS Safety Report 4596006-2 (Version None)
Quarter: 2005Q1

REPORT INFORMATION
  Report Type: 
  Country: None (occurrence: None)
  Receive Date: 20050302
  Receipt Date: 20050221
  Transmission Date: 20050727
  Serious: Yes (Death)
  Sender: FDA-Public Use
  Company Number: JP-JNJFOC-20040200972

PATIENT
  Sex: Male

DRUGS (9)
  1. FENTANYL [Suspect]
     Indication: CANCER PAIN
     Route: 062
     Dates: start: 20040120, end: 20040127
  2. PROCHLORPERAZINE MALEATE [Concomitant]
     Route: 049
     Dates: start: 20040120, end: 20040123
  3. MORPHINE HYDROCHLORIDE [Concomitant]
     Dosage: SUBCUTANEOUSLY
     Dates: start: 20040121, end: 20040126
  4. MORPHINE HYDROCHLORIDE [Concomitant]
     Indication: CANCER PAIN
     Dosage: ORAL ROUTE
     Dates: start: 20040121, end: 20040126
  5. DICLOFENAC SODIUM [Concomitant]
     Indication: CANCER PAIN
     Dates: start: 20040123, end: 20040126
  6. MAGNESIUM OXIDE [Concomitant]
     Indication: CONSTIPATION
     Route: 049
     Dates: start: 20040123, end: 20040126
  7. ZOLPIDEM TARTRATE [Concomitant]
     Route: 049
     Dates: start: 20040123, end: 20040125
  8. SODIUM PICOSULFATE [Concomitant]
     Indication: CONSTIPATION
     Route: 049
     Dates: start: 20040124, end: 20040124
  9. BUTYLSCOPOLAMINE BROMIDE [Concomitant]
     Indication: STRIDOR
     Route: 058
     Dates: start: 20040126, end: 20040126

REACTIONS (2)
  - BLADDER CANCER [None]
  - MALIGNANT NEOPLASM PROGRESSION [None]
